FAERS Safety Report 23832060 (Version 2)
Quarter: 2024Q2

REPORT INFORMATION
  Report Type: Spontaneous
  Country: US (occurrence: US)
  Receive Date: 20240508
  Receipt Date: 20240628
  Transmission Date: 20240716
  Serious: No
  Sender: FDA-Public Use
  Company Number: US-NEUROCRINE BIOSCIENCES INC.-2024NBI04101

PATIENT
  Sex: Female

DRUGS (2)
  1. INGREZZA [Suspect]
     Active Substance: VALBENAZINE
     Indication: Tardive dyskinesia
     Dosage: 80 MILLIGRAM, QD
     Route: 065
     Dates: start: 202404, end: 20240426
  2. INGREZZA [Suspect]
     Active Substance: VALBENAZINE
     Dosage: 40 MILLIGRAM, QD
     Route: 065
     Dates: start: 202404, end: 202404

REACTIONS (1)
  - Nightmare [Recovered/Resolved]

NARRATIVE: CASE EVENT DATE: 20240401
